FAERS Safety Report 8597392-9 (Version None)
Quarter: 2012Q3

REPORT INFORMATION
  Report Type: 
  Country: None (occurrence: None)
  Receive Date: 20120816
  Receipt Date: 20120813
  Transmission Date: 20120928
  Serious: No
  Sender: FDA-Public Use
  Company Number: US-PFIZER INC-2012197324

PATIENT
  Age: 58 Year
  Sex: Male
  Weight: 88 kg

DRUGS (2)
  1. FLECTOR [Suspect]
     Indication: POSTOPERATIVE CARE
     Dosage: UNK, DAILY
     Route: 062
     Dates: start: 20111001, end: 20120101
  2. OXYCODONE [Concomitant]
     Indication: PAIN
     Dosage: 15 MG, 3X/DAY

REACTIONS (1)
  - RASH PRURITIC [None]
